FAERS Safety Report 22596674 (Version 1)
Quarter: 2023Q2

REPORT INFORMATION
  Report Type: Spontaneous
  Country: US (occurrence: US)
  Receive Date: 20230613
  Receipt Date: 20230613
  Transmission Date: 20230722
  Serious: No
  Sender: FDA-Public Use
  Company Number: US-BRISTOL-MYERS SQUIBB COMPANY-2023-082847

PATIENT
  Age: 73 Year
  Sex: Male
  Weight: 81.64 kg

DRUGS (1)
  1. POMALYST [Suspect]
     Active Substance: POMALIDOMIDE
     Indication: Product used for unknown indication
     Dosage: FREQ - EVERY MORNING
     Route: 048
     Dates: start: 20230201

REACTIONS (1)
  - Peripheral swelling [Not Recovered/Not Resolved]
